FAERS Safety Report 23339188 (Version 1)
Quarter: 2023Q4

REPORT INFORMATION
  Report Type: Spontaneous
  Country: US (occurrence: US)
  Receive Date: 20231226
  Receipt Date: 20231226
  Transmission Date: 20240110
  Serious: No
  Sender: FDA-Public Use
  Company Number: US-SA-SAC20231218001203

PATIENT
  Age: 46 Year
  Sex: Male
  Weight: 68.03 kg

DRUGS (16)
  1. FABRAZYME [Suspect]
     Active Substance: AGALSIDASE BETA
     Indication: Fabry^s disease
     Dosage: 65 MG, QOW
     Route: 042
     Dates: start: 20191008, end: 20231212
  2. ENVARSUS XR [Concomitant]
     Active Substance: TACROLIMUS
  3. MYCOPHENOLATE MOFETIL [Concomitant]
     Active Substance: MYCOPHENOLATE MOFETIL
  4. ACETAMINOPHEN [Concomitant]
     Active Substance: ACETAMINOPHEN
  5. DIPHENHYDRAMINE [Concomitant]
     Active Substance: DIPHENHYDRAMINE
  6. LIDOCAINE [Concomitant]
     Active Substance: LIDOCAINE
     Dosage: UNK
  7. STERILE WATER [Concomitant]
     Active Substance: WATER
  8. EPINEPHRINE [Concomitant]
     Active Substance: EPINEPHRINE
  9. VITAMIN D3 [Concomitant]
     Active Substance: CHOLECALCIFEROL
  10. AMLODIPINE [Concomitant]
     Active Substance: AMLODIPINE BESYLATE
  11. ATORVASTATIN [Concomitant]
     Active Substance: ATORVASTATIN
  12. ASPIRIN [Concomitant]
     Active Substance: ASPIRIN
  13. PREDNISONE [Concomitant]
     Active Substance: PREDNISONE
  14. FLUCONAZOLE [Concomitant]
     Active Substance: FLUCONAZOLE
  15. PROAIR DIGIHALER [Concomitant]
     Active Substance: ALBUTEROL SULFATE
  16. SODIUM CHLORIDE [Concomitant]
     Active Substance: SODIUM CHLORIDE

REACTIONS (3)
  - Feeling abnormal [Unknown]
  - Headache [Unknown]
  - Pain [Unknown]

NARRATIVE: CASE EVENT DATE: 20230101
